FAERS Safety Report 4592049-3 (Version None)
Quarter: 2005Q1

REPORT INFORMATION
  Report Type: 
  Country: None (occurrence: None)
  Receive Date: 20050225
  Receipt Date: 20050210
  Transmission Date: 20050727
  Serious: Yes (Other)
  Sender: FDA-Public Use
  Company Number: BE-GLAXOSMITHKLINE-B0371983A

PATIENT
  Age: 75 Year
  Sex: Male

DRUGS (2)
  1. PAROXETINE HCL [Suspect]
     Route: 048
  2. AMIODARONE HYDROCHLORIDE [Suspect]
     Route: 065

REACTIONS (5)
  - ATRIAL FIBRILLATION [None]
  - DIZZINESS [None]
  - DRUG INTERACTION [None]
  - INTESTINAL OBSTRUCTION [None]
  - NAUSEA [None]
